FAERS Safety Report 16959892 (Version 1)
Quarter: 2019Q4

REPORT INFORMATION
  Report Type: Spontaneous
  Country: US (occurrence: US)
  Receive Date: 20191025
  Receipt Date: 20191025
  Transmission Date: 20200122
  Serious: No
  Sender: FDA-Public Use
  Company Number: US-AMGEN-USASP2019176071

PATIENT
  Sex: Female

DRUGS (4)
  1. FOSAMAX [Concomitant]
     Active Substance: ALENDRONATE SODIUM
     Dosage: 70 MILLIGRAM
  2. ENBREL [Suspect]
     Active Substance: ETANERCEPT
     Indication: RHEUMATOID ARTHRITIS
     Dosage: 50 MILLIGRAM, QWK
     Route: 058
     Dates: start: 20180516
  3. NATURE-THROID [Concomitant]
     Active Substance: THYROID, PORCINE
     Dosage: 325 MILLIGRAM
  4. TYNELOL [Concomitant]
     Active Substance: ACETAMINOPHEN
     Dosage: 325 MILLIGRAM

REACTIONS (1)
  - Diarrhoea infectious [Not Recovered/Not Resolved]
